FAERS Safety Report 12858521 (Version 1)
Quarter: 2016Q4

REPORT INFORMATION
  Report Type: Spontaneous
  Country: RU (occurrence: RU)
  Receive Date: 20161018
  Receipt Date: 20161018
  Transmission Date: 20170207
  Serious: Yes (Other)
  Sender: FDA-Public Use
  Company Number: RU-ASTRAZENECA-2016SF08872

PATIENT
  Age: 63 Year
  Sex: Female
  Weight: 64 kg

DRUGS (6)
  1. BRILINTA [Suspect]
     Active Substance: TICAGRELOR
     Indication: ANGINA UNSTABLE
     Route: 048
     Dates: start: 201604
  2. INDAPAMIDE. [Concomitant]
     Active Substance: INDAPAMIDE
  3. ACETYLSALICYLIC ACID [Concomitant]
     Active Substance: ASPIRIN
  4. BISOPROLOL [Concomitant]
     Active Substance: BISOPROLOL
  5. STATIN [Concomitant]
     Active Substance: UNSPECIFIED INGREDIENT
  6. AMLODIPIN [Concomitant]
     Active Substance: AMLODIPINE BESYLATE

REACTIONS (1)
  - Vascular stent thrombosis [Unknown]

NARRATIVE: CASE EVENT DATE: 20161011
